FAERS Safety Report 8041669-2 (Version None)
Quarter: 2012Q1

REPORT INFORMATION
  Report Type: 
  Country: None (occurrence: None)
  Receive Date: 20120112
  Receipt Date: 20120103
  Transmission Date: 20120608
  Serious: Yes (Other)
  Sender: FDA-Public Use
  Company Number: US-ELI_LILLY_AND_COMPANY-US201201001314

PATIENT
  Sex: Female

DRUGS (11)
  1. ZYPREXA [Suspect]
     Dosage: 10 MG, UNK
  2. LISINOPRIL [Concomitant]
  3. NO FLUSH NIACIN [Concomitant]
  4. FEMARA [Concomitant]
  5. SPIRONOLACTONE [Concomitant]
  6. FISH OIL [Concomitant]
  7. CLONAZEPAM [Concomitant]
     Dosage: UNK, PRN
  8. MULTI-VITAMIN [Concomitant]
  9. ZYPREXA [Suspect]
     Indication: BIPOLAR I DISORDER
     Dosage: 2.5 MG, UNK
  10. COREG [Concomitant]
  11. LIPITOR [Concomitant]

REACTIONS (9)
  - AMNESIA [None]
  - SUPRAVENTRICULAR EXTRASYSTOLES [None]
  - GLUCOSE TOLERANCE IMPAIRED [None]
  - WEIGHT INCREASED [None]
  - BLOOD CHOLESTEROL INCREASED [None]
  - SLEEP APNOEA SYNDROME [None]
  - VENTRICULAR EXTRASYSTOLES [None]
  - BENIGN BREAST NEOPLASM [None]
  - BLOOD GLUCOSE INCREASED [None]
